FAERS Safety Report 23107713 (Version 1)
Quarter: 2023Q4

REPORT INFORMATION
  Report Type: Spontaneous
  Country: FR (occurrence: FR)
  Receive Date: 20231026
  Receipt Date: 20231026
  Transmission Date: 20240110
  Serious: Yes (Disabling)
  Sender: FDA-Public Use
  Company Number: None

PATIENT
  Age: 67 Year
  Sex: Male

DRUGS (5)
  1. SORIATANE [Suspect]
     Active Substance: ACITRETIN
     Indication: Hyperhidrosis
     Dosage: DAILY DOSE: 1.0 DF
     Route: 048
     Dates: start: 2013
  2. BOTULINUM TOXIN TYPE A [Suspect]
     Active Substance: BOTULINUM TOXIN TYPE A
     Indication: Hyperhidrosis
     Dosage: TIME INTERVAL: AS NECESSARY: DOSE DESC: UNK, SINGLE
     Route: 065
     Dates: start: 2013, end: 2013
  3. BETAMETHASONE VALERATE [Concomitant]
     Active Substance: BETAMETHASONE VALERATE
     Indication: Hyperhidrosis
     Dosage: DOSE DESC: INCONNUE
     Route: 003
     Dates: start: 2013
  4. CHLORHEXIDINE [Concomitant]
     Active Substance: CHLORHEXIDINE\CHLORHEXIDINE GLUCONATE
     Indication: Hyperhidrosis
     Dosage: DOSE DESC: INCONNUE, FORM: SOLUTION/ DROPS
     Route: 003
     Dates: start: 2013
  5. HYALURONATE SODIUM [Concomitant]
     Active Substance: HYALURONATE SODIUM
     Indication: Hyperhidrosis
     Dosage: DOSE DESC: INCONNUE
     Route: 003
     Dates: start: 2013

REACTIONS (1)
  - Tendon disorder [Not Recovered/Not Resolved]

NARRATIVE: CASE EVENT DATE: 20170101
